FAERS Safety Report 6762443-0 (Version None)
Quarter: 2010Q2

REPORT INFORMATION
  Report Type: 
  Country: None (occurrence: None)
  Receive Date: 20100609
  Receipt Date: 20100604
  Transmission Date: 20101027
  Serious: Yes (Hospitalization)
  Sender: FDA-Public Use
  Company Number: US-RB-010804-10

PATIENT
  Age: 30 Year
  Sex: Male

DRUGS (1)
  1. SUBOXONE [Suspect]
     Route: 060
     Dates: start: 20091001

REACTIONS (1)
  - NEPHROLITHIASIS [None]
